FAERS Safety Report 6576345-6 (Version None)
Quarter: 2010Q1

REPORT INFORMATION
  Report Type: 
  Country: None (occurrence: None)
  Receive Date: 20100210
  Receipt Date: 20100128
  Transmission Date: 20100710
  Serious: Yes (Other)
  Sender: FDA-Public Use
  Company Number: AU-JNJFOC-20091206610

PATIENT
  Age: 74 Year
  Sex: Female
  Weight: 55 kg

DRUGS (4)
  1. TRAMADOL HYDROCHLORIDE [Suspect]
     Indication: PROCEDURAL PAIN
     Route: 065
  2. TRAMADOL HYDROCHLORIDE [Suspect]
     Indication: FEMUR FRACTURE
     Route: 065
  3. ETHANOL [Concomitant]
  4. CHOLESTEROL AND TRIGLYCERIDE REDUCERS [Concomitant]

REACTIONS (2)
  - DELIRIUM TREMENS [None]
  - HALLUCINATION [None]
